FAERS Safety Report 7534196-X (Version None)
Quarter: 2011Q2

REPORT INFORMATION
  Report Type: 
  Country: None (occurrence: None)
  Receive Date: 20110608
  Receipt Date: 20061121
  Transmission Date: 20111010
  Serious: Yes (Death)
  Sender: FDA-Public Use
  Company Number: PHHO2006BR19547

PATIENT
  Age: 58 Year
  Sex: Male

DRUGS (1)
  1. DIOVAN [Suspect]
     Dosage: 80 MG, QD
     Route: 048

REACTIONS (8)
  - BRONCHOPNEUMONIA [None]
  - ENCEPHALOPATHY [None]
  - HYPERTENSION [None]
  - SHOCK [None]
  - DIABETES MELLITUS [None]
  - CARDIAC ARREST [None]
  - PULMONARY VALVE INCOMPETENCE [None]
  - CHRONIC OBSTRUCTIVE PULMONARY DISEASE [None]
